FAERS Safety Report 15931598 (Version 1)
Quarter: 2019Q1

REPORT INFORMATION
  Report Type: Spontaneous
  Country: US (occurrence: US)
  Receive Date: 20190207
  Receipt Date: 20190207
  Transmission Date: 20190417
  Serious: No
  Sender: FDA-Public Use
  Company Number: None

PATIENT
  Age: 51 Year
  Sex: Female
  Weight: 101.25 kg

DRUGS (1)
  1. AIMOVIG [Suspect]
     Active Substance: ERENUMAB-AOOE
     Indication: MIGRAINE
     Dosage: ?          QUANTITY:2 INJECTION(S);OTHER FREQUENCY:MONTHLY;OTHER ROUTE:PREFILLED AUTOINJECTED INTO STOMACH?
     Dates: start: 20190131

REACTIONS (8)
  - Palpitations [None]
  - Back pain [None]
  - Constipation [None]
  - Muscle spasms [None]
  - Nausea [None]
  - Fatigue [None]
  - Drug ineffective [None]
  - Neck pain [None]

NARRATIVE: CASE EVENT DATE: 20190131
